FAERS Safety Report 12777885 (Version 1)
Quarter: 2016Q3

REPORT INFORMATION
  Report Type: Spontaneous
  Country: US (occurrence: US)
  Receive Date: 20160924
  Receipt Date: 20160924
  Transmission Date: 20161109
  Serious: No
  Sender: FDA-Public Use
  Company Number: US-JAZZ-2016-US-010807

PATIENT
  Sex: Female

DRUGS (21)
  1. ASPIRIN EC [Concomitant]
     Active Substance: ASPIRIN
  2. CLONAZEPAM. [Concomitant]
     Active Substance: CLONAZEPAM
  3. ACETAMINOPHEN. [Concomitant]
     Active Substance: ACETAMINOPHEN
  4. CARVEDILOL. [Concomitant]
     Active Substance: CARVEDILOL
  5. ROZEREM [Concomitant]
     Active Substance: RAMELTEON
  6. EFFEXOR XR [Concomitant]
     Active Substance: VENLAFAXINE HYDROCHLORIDE
  7. MULTIVITAMINS [Concomitant]
     Active Substance: VITAMINS
  8. VITAMIN D3 [Concomitant]
     Active Substance: CHOLECALCIFEROL
  9. ALENDRONATE SODIUM. [Concomitant]
     Active Substance: ALENDRONATE SODIUM
  10. DEXTROAMPHETAMINE. [Concomitant]
     Active Substance: DEXTROAMPHETAMINE
  11. GABAPENTIN. [Concomitant]
     Active Substance: GABAPENTIN
  12. XYREM [Suspect]
     Active Substance: SODIUM OXYBATE
     Dosage: 4.25 G, BID
     Dates: start: 200412
  13. ARMOUR THYROID [Concomitant]
     Active Substance: THYROID, PORCINE
  14. MELATONIN [Concomitant]
     Active Substance: MELATONIN
  15. XYREM [Suspect]
     Active Substance: SODIUM OXYBATE
     Indication: NARCOLEPSY
     Dosage: 3 G, BID
     Route: 048
     Dates: start: 200408, end: 200409
  16. ALPRAZOLAM. [Concomitant]
     Active Substance: ALPRAZOLAM
  17. CYANOCOBALAMIN. [Concomitant]
     Active Substance: CYANOCOBALAMIN
  18. SPIRONOLACTONE. [Concomitant]
     Active Substance: SPIRONOLACTONE
  19. VESICARE [Concomitant]
     Active Substance: SOLIFENACIN SUCCINATE
  20. XYREM [Suspect]
     Active Substance: SODIUM OXYBATE
     Indication: CATAPLEXY
     Dosage: 3.75 G, BID
     Route: 048
     Dates: start: 200409, end: 200412
  21. TIZANIDINE HCL [Concomitant]
     Active Substance: TIZANIDINE HYDROCHLORIDE

REACTIONS (4)
  - Head injury [Unknown]
  - Injury [Unknown]
  - Concussion [Unknown]
  - Muscle spasms [Unknown]
